FAERS Safety Report 17157602 (Version 1)
Quarter: 2019Q4

REPORT INFORMATION
  Report Type: Spontaneous
  Country: GB (occurrence: GB)
  Receive Date: 20191216
  Receipt Date: 20191216
  Transmission Date: 20200122
  Serious: Yes (Other)
  Sender: FDA-Public Use
  Company Number: NVSC2019GB065606

PATIENT
  Age: 64 Year
  Sex: Female
  Weight: 54.88 kg

DRUGS (1)
  1. OMEPRAZOLE. [Suspect]
     Active Substance: OMEPRAZOLE
     Indication: GASTRITIS
     Dosage: 20 MG, UNKNOWN
     Route: 048
     Dates: start: 20190427, end: 20190517

REACTIONS (3)
  - Renal pain [Recovered/Resolved]
  - Vomiting [Unknown]
  - Dysuria [Recovered/Resolved]

NARRATIVE: CASE EVENT DATE: 20190517
